FAERS Safety Report 4415074-1 (Version None)
Quarter: 2004Q3

REPORT INFORMATION
  Report Type: 
  Country: None (occurrence: None)
  Receive Date: 20040804
  Receipt Date: 20040730
  Transmission Date: 20050211
  Serious: Yes (Other)
  Sender: FDA-Public Use
  Company Number: 200417608GDDC

PATIENT
  Sex: 0

DRUGS (4)
  1. LANTUS [Suspect]
  2. MELLARIL [Suspect]
  3. GLUCOPHAGE [Concomitant]
  4. ACTOS [Concomitant]

REACTIONS (2)
  - DECREASED INSULIN REQUIREMENT [None]
  - UNEXPECTED THERAPEUTIC DRUG EFFECT [None]
